FAERS Safety Report 19819127 (Version 1)
Quarter: 2021Q3

REPORT INFORMATION
  Report Type: Spontaneous
  Country: NL (occurrence: NL)
  Receive Date: 20210913
  Receipt Date: 20210913
  Transmission Date: 20211014
  Serious: Yes (Other)
  Sender: FDA-Public Use
  Company Number: NL-AUROBINDO-AUR-APL-2021-038432

PATIENT
  Age: 58 Year
  Sex: Male
  Weight: 78 kg

DRUGS (7)
  1. BISOPROLOL [Concomitant]
     Active Substance: BISOPROLOL
     Indication: PRODUCT USED FOR UNKNOWN INDICATION
     Dosage: UNK(TABLET, 2,5 MG (MILLIGRAM))
     Route: 065
  2. EZETIMIBE. [Concomitant]
     Active Substance: EZETIMIBE
     Indication: PRODUCT USED FOR UNKNOWN INDICATION
     Dosage: 10 MILLIGRAM(TABLET, 10 MG (MILLIGRAM))
     Route: 065
  3. XARELTO [Concomitant]
     Active Substance: RIVAROXABAN
     Indication: PRODUCT USED FOR UNKNOWN INDICATION
     Dosage: UNK(TABLET, 20 MG (MILLIGRAM))
     Route: 065
  4. CANDESARTAN. [Concomitant]
     Active Substance: CANDESARTAN
     Indication: PRODUCT USED FOR UNKNOWN INDICATION
     Dosage: 32 MILLIGRAM(TABLET, 32 MG (MILLIGRAM))
     Route: 065
  5. PANTOPRAZOLE GASTRO?RESISTANT TABLET 40 MG [Suspect]
     Active Substance: PANTOPRAZOLE
     Indication: PROPHYLAXIS
     Dosage: 40 MILLIGRAM, ONCE A DAY(1 X DAY 1 PIECE)
     Route: 065
     Dates: start: 201803, end: 20210623
  6. EPLERENONE. [Concomitant]
     Active Substance: EPLERENONE
     Indication: PRODUCT USED FOR UNKNOWN INDICATION
     Dosage: 25 MILLIGRAM(TABLET, 25 MG (MILLIGRAM))
     Route: 065
  7. ROSUVASTATIN. [Concomitant]
     Active Substance: ROSUVASTATIN
     Indication: PRODUCT USED FOR UNKNOWN INDICATION
     Dosage: 20 MILLIGRAM(TABLET, 20 MG (MILLIGRAM))
     Route: 065

REACTIONS (12)
  - Neuropathy peripheral [Recovering/Resolving]
  - Pruritus [Recovering/Resolving]
  - Weight decreased [Recovered/Resolved]
  - Rash papular [Recovering/Resolving]
  - Anosmia [Recovering/Resolving]
  - Ageusia [Recovering/Resolving]
  - Abnormal faeces [Recovered/Resolved]
  - Myalgia [Recovering/Resolving]
  - Dizziness [Recovering/Resolving]
  - Decreased appetite [Recovering/Resolving]
  - Muscle spasms [Recovering/Resolving]
  - Asthenia [Recovering/Resolving]

NARRATIVE: CASE EVENT DATE: 20180401
